FAERS Safety Report 7511383-8 (Version None)
Quarter: 2011Q2

REPORT INFORMATION
  Report Type: 
  Country: None (occurrence: None)
  Receive Date: 20110531
  Receipt Date: 20110516
  Transmission Date: 20111010
  Serious: Yes (Hospitalization, Other)
  Sender: FDA-Public Use
  Company Number: US-BAYER-201038945NA

PATIENT
  Age: 26 Year
  Sex: Female
  Weight: 104.31 kg

DRUGS (11)
  1. CIPROFLOXACIN HCL [Concomitant]
     Dosage: 500 MG, UNK
     Route: 048
     Dates: start: 20050906
  2. HALOPERIDOL [Concomitant]
     Dosage: 5 MG, UNK
     Route: 048
     Dates: start: 20050905
  3. FLOVENT HFA [Concomitant]
     Dosage: 220 MCG/24HR, UNK
     Dates: start: 20050907
  4. CELEXA [Concomitant]
     Indication: DEPRESSION
  5. FLEXERIL [Concomitant]
     Indication: FIBROMYALGIA
     Dosage: 10 MG, UNK
     Route: 048
     Dates: start: 20051008
  6. ALPRAZOLAM [Concomitant]
     Dosage: 0.5 MG, UNK
     Route: 048
  7. LORATADINE [Concomitant]
     Dosage: 10 MG, UNK
     Route: 048
     Dates: start: 20050906
  8. YASMIN [Suspect]
     Indication: PRODUCT USED FOR UNKNOWN INDICATION
     Dosage: UNK
     Route: 048
     Dates: start: 20030601, end: 20050101
  9. CELEXA [Concomitant]
     Indication: ANXIETY
     Dosage: 40 MG, UNK
     Route: 048
     Dates: start: 20051006
  10. BENZTROPINE MESYLATE [Concomitant]
     Dosage: 2 MG, UNK
     Route: 048
     Dates: start: 20050905
  11. ALBUTEROL SULFATE AUTOHALER [Concomitant]
     Dosage: 90 MCG/24HR, UNK
     Dates: start: 20050906

REACTIONS (4)
  - DEEP VEIN THROMBOSIS [None]
  - MENTAL DISORDER [None]
  - THROMBOSIS [None]
  - PULMONARY EMBOLISM [None]
